FAERS Safety Report 15769580 (Version 1)
Quarter: 2018Q4

REPORT INFORMATION
  Report Type: Report from Study
  Country: FR (occurrence: FR)
  Receive Date: 20181228
  Receipt Date: 20181228
  Transmission Date: 20190205
  Serious: Yes (Other)
  Sender: FDA-Public Use
  Company Number: FR-ACCORD-098209

PATIENT
  Age: 32 Year
  Sex: Male

DRUGS (4)
  1. CCNU [Suspect]
     Active Substance: LOMUSTINE
     Indication: OLIGODENDROGLIOMA
     Dosage: 130 MG/M2 ON DAY 1
     Route: 065
  2. VINCRISTINE [Suspect]
     Active Substance: VINCRISTINE
     Indication: OLIGODENDROGLIOMA
     Dosage: 1.4 MG/M2 ON DAY 8 AND 29 (CUMULATIVE DOSE :6MG)
     Route: 065
  3. PROCARBAZINE [Suspect]
     Active Substance: PROCARBAZINE
     Indication: OLIGODENDROGLIOMA
     Dosage: 75 MG/M2 ON DAY 8-21
     Route: 065
  4. TEMOZOLOMIDE. [Suspect]
     Active Substance: TEMOZOLOMIDE
     Indication: OLIGODENDROGLIOMA
     Dosage: 200 MG/M2/DAY FOR 5 DAYS
     Route: 065

REACTIONS (2)
  - Condition aggravated [Recovering/Resolving]
  - Hereditary motor and sensory neuropathy [Recovering/Resolving]
